FAERS Safety Report 17412734 (Version 1)
Quarter: 2020Q1

REPORT INFORMATION
  Report Type: Spontaneous
  Country: US (occurrence: US)
  Receive Date: 20200212
  Receipt Date: 20200212
  Transmission Date: 20200409
  Serious: No
  Sender: FDA-Public Use
  Company Number: None

PATIENT
  Age: 37 Year
  Sex: Male
  Weight: 67.5 kg

DRUGS (4)
  1. GENVOYA [Suspect]
     Active Substance: COBICISTAT\ELVITEGRAVIR\EMTRICITABINE\TENOFOVIR ALAFENAMIDE FUMARATE
     Indication: HIV INFECTION
     Dosage: ??          QUANTITY:30 TABLET(S);?
     Route: 048
  2. GENVOYA [Concomitant]
     Active Substance: COBICISTAT\ELVITEGRAVIR\EMTRICITABINE\TENOFOVIR ALAFENAMIDE FUMARATE
  3. ZOFRAN [Concomitant]
     Active Substance: ONDANSETRON HYDROCHLORIDE
  4. MULTIVITAMIN [Concomitant]
     Active Substance: VITAMINS

REACTIONS (22)
  - Diarrhoea [None]
  - Hypoaesthesia [None]
  - Pain in extremity [None]
  - Ocular hyperaemia [None]
  - Bradyphrenia [None]
  - Taste disorder [None]
  - Chest discomfort [None]
  - Anxiety [None]
  - Abdominal pain upper [None]
  - Gastrointestinal disorder [None]
  - Myalgia [None]
  - Hyperhidrosis [None]
  - Throat irritation [None]
  - Vomiting [None]
  - Headache [None]
  - Fatigue [None]
  - Back pain [None]
  - Depression [None]
  - Pain [None]
  - Flatulence [None]
  - Nausea [None]
  - Asthenia [None]

NARRATIVE: CASE EVENT DATE: 19820225
